FAERS Safety Report 13409225 (Version 1)
Quarter: 2017Q2

REPORT INFORMATION
  Report Type: Spontaneous
  Country: US (occurrence: US)
  Receive Date: 20170406
  Receipt Date: 20170406
  Transmission Date: 20170830
  Serious: No
  Sender: FDA-Public Use
  Company Number: None

PATIENT

DRUGS (2)
  1. LEVETIRACETAM. [Suspect]
     Active Substance: LEVETIRACETAM
     Route: 042
  2. VALPROATE SODIUM 500MG PER 5ML [Suspect]
     Active Substance: VALPROATE SODIUM
     Route: 042

REACTIONS (2)
  - Product label confusion [None]
  - Product packaging confusion [None]
